FAERS Safety Report 8615062-5 (Version None)
Quarter: 2012Q3

REPORT INFORMATION
  Report Type: 
  Country: None (occurrence: None)
  Receive Date: 20120823
  Receipt Date: 20120822
  Transmission Date: 20120928
  Serious: Yes (Death, Hospitalization)
  Sender: FDA-Public Use
  Company Number: PHHO2011DE04466

PATIENT
  Sex: Male
  Weight: 75 kg

DRUGS (8)
  1. PREDNISONE [Concomitant]
     Dosage: UNK
  2. HYDROCHLOROTHIAZIDE [Concomitant]
  3. MAGNESIUM [Concomitant]
  4. ENALAPRIL MALEATE [Concomitant]
  5. BETAHISTINE [Concomitant]
  6. OMEPRAZOLE [Concomitant]
  7. TASIGNA [Suspect]
     Indication: CHRONIC MYELOID LEUKAEMIA
     Dosage: 400 MG, BID
     Route: 048
     Dates: start: 20050808, end: 20110330
  8. AMLODIPINE [Concomitant]

REACTIONS (5)
  - CEREBELLAR INFARCTION [None]
  - BRAIN HERNIATION [None]
  - BRAIN OEDEMA [None]
  - VERTIGO [None]
  - DIZZINESS [None]
